FAERS Safety Report 10537982 (Version 1)
Quarter: 2014Q4

REPORT INFORMATION
  Report Type: Spontaneous
  Country: US (occurrence: US)
  Receive Date: 20141023
  Receipt Date: 20141023
  Transmission Date: 20150529
  Serious: No
  Sender: FDA-Public Use
  Company Number: US-PFIZER INC-2014289328

PATIENT
  Age: 79 Year
  Sex: Female

DRUGS (1)
  1. XANAX [Suspect]
     Active Substance: ALPRAZOLAM
     Dosage: 1 MG, 5X/ DAY

REACTIONS (2)
  - Oral discomfort [Unknown]
  - Glossodynia [Unknown]

NARRATIVE: CASE EVENT DATE: 20141019
